APPROVED DRUG PRODUCT: REGLAN
Active Ingredient: METOCLOPRAMIDE HYDROCHLORIDE
Strength: EQ 10MG BASE/ML **Federal Register determination that product was not discontinued or withdrawn for safety or effectiveness reasons**
Dosage Form/Route: INJECTABLE;INJECTION
Application: N017862 | Product #004
Applicant: HIKMA PHARMACEUTICALS USA INC
Approved: May 28, 1987 | RLD: No | RS: No | Type: DISCN